FAERS Safety Report 7376094-0 (Version None)
Quarter: 2011Q1

REPORT INFORMATION
  Report Type: 
  Country: None (occurrence: None)
  Receive Date: 20110325
  Receipt Date: 20110316
  Transmission Date: 20110831
  Serious: Yes (Death)
  Sender: FDA-Public Use
  Company Number: VE-MEDIMMUNE-MEDI-0012946

PATIENT
  Sex: Female
  Weight: 0.9 kg

DRUGS (1)
  1. SYNAGIS [Suspect]
     Route: 058
     Dates: start: 20110210, end: 20110210

REACTIONS (1)
  - PREMATURE BABY [None]
